FAERS Safety Report 7513437-9 (Version None)
Quarter: 2011Q2

REPORT INFORMATION
  Report Type: 
  Country: None (occurrence: None)
  Receive Date: 20110526
  Receipt Date: 20110526
  Transmission Date: 20111010
  Serious: Yes (Other)
  Sender: FDA-Public Use
  Company Number: None

PATIENT
  Age: 55 Year
  Sex: Female
  Weight: 62.5964 kg

DRUGS (1)
  1. ZITHROMAX [Suspect]
     Indication: ANTIBIOTIC THERAPY
     Dosage: 250 MG 1 WITH MEAL AM
     Dates: start: 20110331

REACTIONS (1)
  - DYSGEUSIA [None]
